FAERS Safety Report 16588118 (Version 2)
Quarter: 2019Q3

REPORT INFORMATION
  Report Type: Spontaneous
  Country: US (occurrence: US)
  Receive Date: 20190717
  Receipt Date: 20190830
  Transmission Date: 20191004
  Serious: Yes (Hospitalization, Other)
  Sender: FDA-Public Use
  Company Number: US-PFIZER INC-2017277496

PATIENT
  Age: 56 Year
  Sex: Female
  Weight: 47 kg

DRUGS (15)
  1. LYRICA [Suspect]
     Active Substance: PREGABALIN
     Indication: NERVE INJURY
     Dosage: 25 MG, UNK [STARTS THE DAY OFF WITH 25 MG THEN TAKES ANOTHER 25 MG TO KEEP GOING THROUGHOUT THE DAY]
  2. LYRICA [Suspect]
     Active Substance: PREGABALIN
     Dosage: 75 MG, 2X/DAY
  3. LYRICA [Suspect]
     Active Substance: PREGABALIN
     Indication: CARTILAGE INJURY
     Dosage: 150 MG, DAILY
  4. LYRICA [Suspect]
     Active Substance: PREGABALIN
     Dosage: 25 MG, 2X/DAY
  5. LYRICA [Suspect]
     Active Substance: PREGABALIN
     Indication: SPINAL LAMINECTOMY
     Dosage: 75 MG, UNK (75MG, 2-3 TIMES)
  6. LIDODERM [Concomitant]
     Active Substance: LIDOCAINE
     Dosage: UNK
  7. LYRICA [Suspect]
     Active Substance: PREGABALIN
     Indication: ARTHROPATHY
     Dosage: 50 MG, 1X/DAY
     Route: 048
     Dates: start: 201702
  8. LYRICA [Suspect]
     Active Substance: PREGABALIN
     Indication: CERVICAL RADICULOPATHY
     Dosage: 50 MG, 2X/DAY
     Route: 048
  9. LYRICA [Suspect]
     Active Substance: PREGABALIN
     Dosage: 25 MG, 3X/DAY
     Route: 048
  10. TRAMADOL. [Concomitant]
     Active Substance: TRAMADOL
     Dosage: 50 MG, UNK (1 BY MOUTH 2-3 TIMES A DAY OR CAN TAKE EVERY 4 HOURS)
     Route: 048
  11. LYRICA [Suspect]
     Active Substance: PREGABALIN
     Indication: NEURALGIA
     Dosage: 50 MG, UNK [STARTS THE DAY OFF WITH 25 MG THEN TAKES ANOTHER 25 MG TO KEEP GOING THROUGHOUT THE DAY]
  12. CELEBREX [Concomitant]
     Active Substance: CELECOXIB
     Dosage: UNK
  13. LYRICA [Suspect]
     Active Substance: PREGABALIN
     Dosage: 100 MG, UNK
  14. LYRICA [Suspect]
     Active Substance: PREGABALIN
     Dosage: 50 MG, 2X/DAY
  15. TRAMADOL. [Concomitant]
     Active Substance: TRAMADOL
     Indication: PAIN
     Dosage: UNK UNK, EVERY 4 HRS (50MG, ONE QUARTER OF PILL, ONCE EVERY 4 HOURS)
     Dates: start: 201702

REACTIONS (20)
  - Feeling abnormal [Unknown]
  - Immune system disorder [Unknown]
  - Hyperhidrosis [Unknown]
  - Diarrhoea [Unknown]
  - Pain [Unknown]
  - Staphylococcal infection [Recovered/Resolved]
  - Chills [Unknown]
  - Asthenia [Recovering/Resolving]
  - Intentional product misuse [Unknown]
  - Withdrawal syndrome [Unknown]
  - Insomnia [Unknown]
  - Drug dependence [Unknown]
  - Trismus [Unknown]
  - Memory impairment [Unknown]
  - Anxiety [Unknown]
  - Decreased appetite [Unknown]
  - Cold sweat [Unknown]
  - Weight decreased [Unknown]
  - Nausea [Unknown]
  - Headache [Unknown]
